FAERS Safety Report 4619120-1 (Version None)
Quarter: 2005Q2

REPORT INFORMATION
  Report Type: 
  Country: None (occurrence: None)
  Receive Date: 20050321
  Receipt Date: 20041208
  Transmission Date: 20051028
  Serious: Yes (Other)
  Sender: FDA-Public Use
  Company Number: 2003-10-1135

PATIENT
  Age: 41 Year
  Sex: Female

DRUGS (1)
  1. PEG-INTRON [Suspect]
     Dosage: SUBCUTANEOUS
     Route: 058

REACTIONS (4)
  - ANAEMIA [None]
  - DEPRESSION [None]
  - PSORIASIS [None]
  - VISION BLURRED [None]
